FAERS Safety Report 8732147 (Version 2)
Quarter: 2012Q4

REPORT INFORMATION
  Report Type: Report from Study
  Country: US (occurrence: US)
  Receive Date: 20120820
  Receipt Date: 20120904
  Transmission Date: 20130627
  Serious: Yes (Hospitalization, Other)
  Sender: FDA-Public Use
  Company Number: US-CELGENEUS-163-50794-12072618

PATIENT
  Age: 81 Year
  Sex: Male

DRUGS (57)
  1. VIDAZA [Suspect]
     Indication: ACUTE MYELOID LEUKEMIA
     Dosage: 75 milligram/sq. meter
     Route: 041
     Dates: start: 20120615, end: 20120621
  2. SORAFENIB [Suspect]
     Indication: ACUTE MYELOID LEUKEMIA
     Dosage: 400 Milligram
     Route: 048
     Dates: start: 20120615, end: 20120621
  3. COREG [Concomitant]
     Indication: BLOOD PRESSURE
     Dosage: 3.125 Milligram
     Route: 048
  4. COREG [Concomitant]
     Dosage: 12.5 Milligram
     Route: 048
     Dates: start: 20120716
  5. ACETAMINOPHEN [Concomitant]
     Indication: DRUG USE FOR UNKNOWN INDICATION
     Dosage: 650 Milligram
     Route: 048
     Dates: end: 20120723
  6. ALUM + MAG HYDROX-SIMETHICONE [Concomitant]
     Indication: INDIGESTION
     Dosage: 15 milliliter
     Route: 048
     Dates: end: 20120723
  7. FINASTERIDE [Concomitant]
     Indication: DRUG USE FOR UNKNOWN INDICATION
     Dosage: 5 Milligram
     Route: 048
     Dates: end: 20120723
  8. FLUCONAZOLE [Concomitant]
     Indication: FUNGAL INFECTION
     Dosage: 200 Milligram
     Route: 048
     Dates: end: 20120723
  9. HYDRALAZINE [Concomitant]
     Indication: DRUG USE FOR UNKNOWN INDICATION
     Dosage: 10 Milligram
     Route: 041
     Dates: end: 20120723
  10. HYDROCORTISONE [Concomitant]
     Indication: DRUG USE FOR UNKNOWN INDICATION
     Dosage: 1 appl
     Route: 061
     Dates: end: 20120723
  11. HYDROCORTISONE SOD SUCC [Concomitant]
     Indication: DRUG USE FOR UNKNOWN INDICATION
     Dosage: 25 Milligram
     Route: 041
     Dates: end: 20120723
  12. ISOSORBIDE MONONITRATE [Concomitant]
     Indication: BLOOD PRESSURE
     Dosage: 30 Milligram
     Route: 048
     Dates: end: 20120723
  13. LEVOFLOXACIN [Concomitant]
     Indication: BACTERIAL INFECTION
     Dosage: 250 Milligram
     Route: 048
     Dates: end: 20120723
  14. LORATADINE [Concomitant]
     Indication: ALLERGY
     Dosage: 10 Milligram
     Route: 048
  15. MAGNESIUM OXIDE [Concomitant]
     Indication: MAGNESIUM SUPPLEMENTATION
     Dosage: 800 Milligram
     Route: 048
  16. MAGNESIUM OXIDE [Concomitant]
     Dosage: 1000 Milligram
     Route: 048
     Dates: end: 20120723
  17. MAGNESIUM SULFATE [Concomitant]
     Indication: DRUG USE FOR UNKNOWN INDICATION
     Dosage: 8 Milliequivalents
     Route: 041
  18. MULTIVITAMINS [Concomitant]
     Indication: VITAMIN SUPPLEMENTATION
     Dosage: 1 Tablet
     Route: 048
     Dates: end: 20120723
  19. ONDANSETRON HCL [Concomitant]
     Indication: NAUSEA
     Dosage: 8 Milligram
     Route: 048
  20. ONDANSETRON HCL [Concomitant]
     Indication: VOMITING
     Dosage: 8 Milligram
     Route: 041
     Dates: end: 20120723
  21. OYSTER SHELL CALCIUM [Concomitant]
     Indication: DRUG USE FOR UNKNOWN INDICATION
     Dosage: 1000 Milligram
     Route: 048
     Dates: end: 20120723
  22. PANTOPRAZOLE SODIUM [Concomitant]
     Indication: DRUG USE FOR UNKNOWN INDICATION
     Dosage: 40 Milligram
     Route: 048
     Dates: end: 20120723
  23. PIPERACILLIN / TAZOBACTAM [Concomitant]
     Indication: DRUG USE FOR UNKNOWN INDICATION
     Dosage: 13.5 Milligram
     Route: 041
  24. PREDNISONE [Concomitant]
     Indication: POLYMYALGIA RHEUMATICA
     Dosage: 5 Milligram
     Route: 048
     Dates: end: 20120723
  25. SENNOSIDES-DOCUSATE SODIUM [Concomitant]
     Indication: CONSTIPATION
     Dosage: 2 Tablet
     Route: 048
     Dates: end: 20120723
  26. SENNOSIDES-DOCUSATE SODIUM [Concomitant]
     Dosage: 1 Tablet
     Route: 048
     Dates: end: 20120723
  27. SODIUM CHLORIDE [Concomitant]
     Indication: DRUG USE FOR UNKNOWN INDICATION
     Dosage: 1000 milliliter
     Route: 041
     Dates: end: 20120723
  28. SODIUM CHLORIDE [Concomitant]
     Dosage: 10 milliliter
     Route: 041
     Dates: end: 20120723
  29. SODIUM CHLORIDE [Concomitant]
     Dosage: 1000 milliliter
     Route: 041
     Dates: end: 20120723
  30. SODIUM CHLORIDE [Concomitant]
     Dosage: 10 milliliter
     Route: 041
  31. TEMAZEPAM [Concomitant]
     Indication: INSOMNIA
     Dosage: 15 Milligram
     Route: 048
     Dates: end: 20120723
  32. TRAMADOL HCL [Concomitant]
     Indication: PAIN
     Dosage: 50 Milligram
     Route: 048
     Dates: end: 20120723
  33. TRIAMCINOLONE ACETONIDE [Concomitant]
     Indication: SKIN RASH
     Dosage: 1 appl
     Route: 061
  34. VALACYCLOVIR [Concomitant]
     Indication: VIRAL INFECTION
     Dosage: 500 Milligram
     Route: 048
     Dates: end: 20120723
  35. VALACYCLOVIR [Concomitant]
     Dosage: 250 Milligram
     Route: 048
  36. AMINOCAPROIC ACID [Concomitant]
     Indication: MOUTH BLEEDING
     Dosage: 10 milliliter
     Route: 048
     Dates: end: 20120723
  37. AMIODARONE [Concomitant]
     Indication: DRUG USE FOR UNKNOWN INDICATION
     Dosage: 450 Milligram
     Route: 041
     Dates: end: 20120725
  38. AMIODARONE [Concomitant]
     Dosage: 200 Milligram
     Route: 048
  39. ATORVASTATIN CALCIUM [Concomitant]
     Indication: CHOLESTEROL
     Dosage: 10 Milligram
     Route: 048
     Dates: end: 20120723
  40. BISMUTH [Concomitant]
     Indication: HEARTBURN
     Dosage: 262 Milligram
     Route: 048
     Dates: end: 20120723
  41. CALCIUM CARBONATE [Concomitant]
     Indication: CALCIUM SUPPLEMENTATION
     Dosage: 1200 Milligram
     Route: 048
  42. CARVEDILOL [Concomitant]
     Indication: DRUG USE FOR UNKNOWN INDICATION
     Dosage: 12.5 Milligram
     Route: 048
     Dates: end: 20120723
  43. CHLORHEXIDINE GLUCONATE [Concomitant]
     Indication: DRUG USE FOR UNKNOWN INDICATION
     Dosage: 10 or 15ml
     Dates: end: 20120723
  44. DEXTROMETHORPHAN-GUAIFENESIN [Concomitant]
     Indication: COUGH
     Dosage: 10 milliliter
     Route: 048
     Dates: end: 20120723
  45. DIPHENOXYLATE W/ ATROPINE [Concomitant]
     Indication: DRUG USE FOR UNKNOWN INDICATION
     Dosage: 1 Tablet
     Route: 048
     Dates: end: 20120723
  46. NIFEDIPINE [Concomitant]
     Indication: ATRIAL FIBRILLATION
     Dosage: 30 Milligram
     Route: 065
  47. ASPIRIN [Concomitant]
     Indication: HEARTBURN
     Dosage: 81 Milligram
     Route: 048
  48. NORVASC [Concomitant]
     Indication: DRUG USE FOR UNKNOWN INDICATION
     Dosage: 5
     Route: 065
  49. TUMS [Concomitant]
     Indication: HEARTBURN
     Dosage: 500 Milligram
     Route: 048
  50. FLEX A MIN/LUTEIN [Concomitant]
     Indication: SUPPLEMENTATION THERAPY
     Dosage: 1 Tablet
     Route: 048
  51. HEPARIN FLUSH [Concomitant]
     Indication: CENTRAL LINE MANAGEMENT
     Dosage: 2 milliliter
     Route: 041
  52. PRILOSEC [Concomitant]
     Indication: ACID REFLUX (OESOPHAGEAL)
     Dosage: 20 Milligram
     Route: 048
  53. VITAMIN B12 [Concomitant]
     Indication: VITAMIN SUPPLEMENTATION
     Dosage: 1000 Milligram
     Route: 048
  54. VITAMIN C [Concomitant]
     Indication: SUPPLEMENTATION THERAPY
     Dosage: 1000 Milligram
     Route: 048
  55. VITAMIN D3 [Concomitant]
     Indication: SUPPLEMENTATION THERAPY
     Dosage: 1000 units
     Route: 048
  56. CEFEPIME HCL [Concomitant]
     Indication: DRUG USE FOR UNKNOWN INDICATION
     Dosage: 2 Gram
     Route: 041
     Dates: end: 20120723
  57. LINEZOLID [Concomitant]
     Indication: DRUG USE FOR UNKNOWN INDICATION
     Dosage: 1200 Milligram
     Route: 041
     Dates: end: 20120723

REACTIONS (2)
  - Electrocardiogram QT prolonged [Unknown]
  - Atrial fibrillation [Unknown]
